FAERS Safety Report 21399578 (Version 2)
Quarter: 2022Q4

REPORT INFORMATION
  Report Type: Spontaneous
  Country: DE (occurrence: DE)
  Receive Date: 20221001
  Receipt Date: 20221022
  Transmission Date: 20230112
  Serious: Yes (Other)
  Sender: FDA-Public Use
  Company Number: None

PATIENT
  Sex: Male

DRUGS (9)
  1. DILTIAZEM [Interacting]
     Active Substance: DILTIAZEM
     Indication: Coronary artery disease
     Dosage: DAILY INTAKE, STRENGTH : 90 MG
     Route: 065
  2. CELECOXIB [Interacting]
     Active Substance: CELECOXIB
     Indication: Ankylosing spondylitis
     Dosage: IF NEEDED, 2 TO 3 TABLETS OF CELECOXIB OVER 2 DAYS IN A MONTH, STRENGTH : 200 MG
     Route: 065
  3. CELECOXIB [Interacting]
     Active Substance: CELECOXIB
     Dosage: ONE TABLET OF CELECOXIB DAILY FOR ABOUT 5 DAYS.BELOW THIS CAME THE UAWS, UNIT DOSE : 200MG, FREQUENC
     Route: 065
  4. CANDESARTAN [Interacting]
     Active Substance: CANDESARTAN
     Indication: Coronary artery disease
     Dosage: DAILY INTAKE, STRENGTH : 16 MG
     Route: 065
  5. MOLSIDOMINE [Interacting]
     Active Substance: MOLSIDOMINE
     Indication: Coronary artery disease
     Dosage: DAILY INTAKE , STRENGTH : 4 MG
     Route: 065
  6. RANEXA [Interacting]
     Active Substance: RANOLAZINE
     Indication: Coronary artery disease
     Dosage: DAILY INTAKE, RANEXA 500
     Route: 065
  7. ROSUVASTATIN [Concomitant]
     Active Substance: ROSUVASTATIN
     Indication: Coronary artery disease
     Dosage: DAILY INTAKE, STRENGTH : 10 MG
  8. XARELTO [Concomitant]
     Active Substance: RIVAROXABAN
     Indication: Coronary artery disease
     Dosage: DAILY INTAKE, STRENGTH : 2.5MG
  9. ASPIRIN [Concomitant]
     Active Substance: ASPIRIN
     Indication: Coronary artery disease
     Dosage: ASS 100, DAILY INTAKE

REACTIONS (3)
  - Angina pectoris [Recovered/Resolved]
  - Drug interaction [Unknown]
  - Chest pain [Recovered/Resolved]
